FAERS Safety Report 9281065 (Version 1)
Quarter: 2013Q2

REPORT INFORMATION
  Report Type: Spontaneous
  Country: US (occurrence: US)
  Receive Date: 20130509
  Receipt Date: 20130509
  Transmission Date: 20140414
  Serious: Yes (Hospitalization)
  Sender: FDA-Public Use
  Company Number: US-BAYER-2013-055750

PATIENT
  Age: 28 Year
  Sex: Female
  Weight: 113.83 kg

DRUGS (8)
  1. YAZ [Suspect]
  2. YASMIN [Suspect]
  3. OCELLA [Suspect]
  4. SYMBICORT [Concomitant]
     Indication: ASTHMA
  5. PREDNISONE [Concomitant]
  6. AMITRIPTYLINE [Concomitant]
  7. EFFEXOR [Concomitant]
  8. ELAVIL [Concomitant]

REACTIONS (1)
  - Pulmonary embolism [None]
